FAERS Safety Report 6587945-1 (Version None)
Quarter: 2010Q1

REPORT INFORMATION
  Report Type: 
  Country: None (occurrence: None)
  Receive Date: 20100217
  Receipt Date: 20100217
  Transmission Date: 20100710
  Serious: Yes (Hospitalization)
  Sender: FDA-Public Use
  Company Number: None

PATIENT
  Age: 57 Year
  Sex: Male
  Weight: 85.9 kg

DRUGS (2)
  1. ALIMTA [Suspect]
     Indication: LUNG NEOPLASM MALIGNANT
     Dosage: ALIMTA 500MG/M2 Q 21 DAYS IV
     Route: 042
     Dates: start: 20091124, end: 20100126
  2. CELECOXIB [Suspect]
     Indication: LUNG NEOPLASM MALIGNANT
     Dosage: CELECOXIB 400 MG BID X 21 D PO
     Route: 048
     Dates: start: 20091124, end: 20100130

REACTIONS (4)
  - ATRIAL FIBRILLATION [None]
  - DYSPNOEA [None]
  - PALPITATIONS [None]
  - PERICARDIAL EFFUSION [None]
